FAERS Safety Report 21756062 (Version 1)
Quarter: 2022Q4

REPORT INFORMATION
  Report Type: Spontaneous
  Country: US (occurrence: None)
  Receive Date: 20221219
  Receipt Date: 20221219
  Transmission Date: 20230112
  Serious: No
  Sender: FDA-Public Use
  Company Number: None

PATIENT
  Sex: Female

DRUGS (3)
  1. DEVICE [Suspect]
     Active Substance: DEVICE
     Indication: Pulmonary arterial hypertension
     Dosage: OTHER QUANTITY : VELTRI 15.1 NG/KG/;?OTHER FREQUENCY : CONTINUOUS;?
     Route: 042
     Dates: start: 20191003
  2. DEVICE [Suspect]
     Active Substance: DEVICE
     Dosage: OTHER QUANTITY : VELETRI 15.1NG/KG/;?OTHER FREQUENCY : CONTINUOUS;?
     Route: 042
  3. VELETRI [Suspect]
     Active Substance: EPOPROSTENOL

REACTIONS (2)
  - Device malfunction [None]
  - Product quality issue [None]
